FAERS Safety Report 9914990 (Version 3)
Quarter: 2014Q3

REPORT INFORMATION
  Report Type: Report from Study
  Country: IN (occurrence: IN)
  Receive Date: 20140220
  Receipt Date: 20140804
  Transmission Date: 20150326
  Serious: Yes (Hospitalization)
  Sender: FDA-Public Use
  Company Number: PHHO2014IN002513

PATIENT

DRUGS (8)
  1. ENALAPRIL [Suspect]
     Active Substance: ENALAPRIL
     Indication: CARDIAC FAILURE CHRONIC
     Dosage: 10 MG, BID
     Route: 048
     Dates: start: 20111222, end: 20140215
  2. CLOPIDOGREL [Suspect]
     Active Substance: CLOPIDOGREL BISULFATE
  3. CLOPILET A [Concomitant]
     Active Substance: ASPIRIN\CLOPIDOGREL BISULFATE
     Indication: MYOCARDIAL INFARCTION
     Dosage: 150 MG, OD
     Route: 048
     Dates: start: 20110722, end: 20140215
  4. CARDIVAS//AMLODIPINE BESILATE [Concomitant]
     Indication: CARDIAC FAILURE
     Dosage: 3.125 MG, OD
     Route: 048
     Dates: start: 20110722, end: 20140215
  5. ROSVEL [Concomitant]
     Indication: MYOCARDIAL INFARCTION
     Dosage: 10 MG, OD
     Route: 048
     Dates: end: 20140215
  6. TORSEMIDE. [Suspect]
     Active Substance: TORSEMIDE
  7. ACETYLSALICYLIC ACID [Suspect]
     Active Substance: ASPIRIN
  8. DYTOR PLUS [Concomitant]
     Indication: CARDIAC FAILURE
     Dosage: 10 MG, OD
     Route: 048
     Dates: start: 20110722, end: 20140215

REACTIONS (2)
  - Upper gastrointestinal haemorrhage [Recovered/Resolved]
  - Hyponatraemia [Recovered/Resolved]

NARRATIVE: CASE EVENT DATE: 20140215
